FAERS Safety Report 25582367 (Version 1)
Quarter: 2025Q3

REPORT INFORMATION
  Report Type: Spontaneous
  Country: TR (occurrence: TR)
  Receive Date: 20250720
  Receipt Date: 20250720
  Transmission Date: 20251021
  Serious: Yes (Other)
  Sender: Unknown Manufacturer
  Company Number: TR-STRIDES ARCOLAB LIMITED-2025OS000119

PATIENT
  Age: 8 Year

DRUGS (2)
  1. IBUPROFEN [Suspect]
     Active Substance: IBUPROFEN
     Indication: Product use in unapproved indication
     Route: 065
  2. DIPYRONE [Suspect]
     Active Substance: DIPYRONE
     Indication: Product used for unknown indication
     Route: 065

REACTIONS (3)
  - Cross sensitivity reaction [Unknown]
  - Anaphylactic reaction [Unknown]
  - Angioedema [Unknown]
